FAERS Safety Report 19446219 (Version 1)
Quarter: 2021Q2

REPORT INFORMATION
  Report Type: Spontaneous
  Country: DE (occurrence: DE)
  Receive Date: 20210622
  Receipt Date: 20210622
  Transmission Date: 20210717
  Serious: Yes (Other)
  Sender: FDA-Public Use
  Company Number: DE-HORMOSAN PHARMA GMBH-2021-09670

PATIENT

DRUGS (6)
  1. LACOSAMIDE. [Interacting]
     Active Substance: LACOSAMIDE
     Indication: PARTIAL SEIZURES
     Dosage: UNK
     Route: 065
  2. BRIVARACETAM [Interacting]
     Active Substance: BRIVARACETAM
     Indication: PARTIAL SEIZURES
     Dosage: UNK
     Route: 065
  3. LAMOTRIGINE. [Suspect]
     Active Substance: LAMOTRIGINE
     Indication: PARTIAL SEIZURES
     Dosage: UNK
     Route: 065
  4. LACOSAMIDE. [Interacting]
     Active Substance: LACOSAMIDE
     Dosage: UNK (DOSE INCREASED)
     Route: 065
  5. PERAMPANEL [Interacting]
     Active Substance: PERAMPANEL
     Indication: PARTIAL SEIZURES
     Dosage: 4 MILLIGRAM, QD (AT BEDTIME)
     Route: 048
  6. PHENYTOIN SODIUM. [Interacting]
     Active Substance: PHENYTOIN SODIUM
     Indication: PARTIAL SEIZURES
     Dosage: UNK
     Route: 065

REACTIONS (2)
  - Drug clearance increased [Unknown]
  - Drug interaction [Unknown]
